FAERS Safety Report 9185174 (Version 1)
Quarter: 2013Q1

REPORT INFORMATION
  Report Type: Spontaneous
  Country: US (occurrence: US)
  Receive Date: 20130325
  Receipt Date: 20130325
  Transmission Date: 20140127
  Serious: No
  Sender: FDA-Public Use
  Company Number: US-B.I. PHARMACEUTICALS,INC./RIDGEFIELD-2012-BP-26735BP

PATIENT
  Age: 10 Year
  Sex: Female
  Weight: 32 kg

DRUGS (3)
  1. SPIRIVA [Suspect]
     Indication: VOCAL CORD DISORDER
     Dosage: 18 MCG
     Route: 055
     Dates: start: 20121024
  2. LANDIS [Concomitant]
     Indication: DIABETES MELLITUS
     Route: 058
     Dates: start: 200311
  3. NOVALOG [Concomitant]
     Indication: DIABETES MELLITUS
     Route: 058
     Dates: start: 200311

REACTIONS (2)
  - Dry throat [Not Recovered/Not Resolved]
  - Throat irritation [Not Recovered/Not Resolved]
